FAERS Safety Report 6262757-7 (Version None)
Quarter: 2009Q3

REPORT INFORMATION
  Report Type: 
  Country: None (occurrence: None)
  Receive Date: 20090708
  Receipt Date: 20090626
  Transmission Date: 20100115
  Serious: No
  Sender: FDA-Public Use
  Company Number: CCC100853

PATIENT
  Sex: Female
  Weight: 3.6288 kg

DRUGS (1)
  1. HYOSCYAMINE SULFATE ORAL DROPS [Suspect]
     Indication: ABDOMINAL PAIN UPPER
     Dosage: 4 DROPS, 6-8 HRS., ORAL
     Route: 048
     Dates: start: 20090616, end: 20090626

REACTIONS (2)
  - GASTRIC DISORDER [None]
  - PRODUCT CONTAMINATION PHYSICAL [None]
